FAERS Safety Report 4963335-X (Version None)
Quarter: 2006Q2

REPORT INFORMATION
  Report Type: 
  Country: None (occurrence: None)
  Receive Date: 20060405
  Receipt Date: 20060324
  Transmission Date: 20061013
  Serious: Yes (Hospitalization)
  Sender: FDA-Public Use
  Company Number: PHBS2006JP04712

PATIENT
  Age: 81 Year
  Weight: 60 kg

DRUGS (2)
  1. NEORAL [Suspect]
     Dosage: 225 MG/D
     Route: 048
  2. SELBEX [Concomitant]
     Route: 048

REACTIONS (5)
  - APPENDICECTOMY [None]
  - APPENDICITIS [None]
  - BLOOD CREATININE INCREASED [None]
  - BLOOD UREA INCREASED [None]
  - RENAL IMPAIRMENT [None]
